FAERS Safety Report 7012697-0 (Version None)
Quarter: 2010Q3

REPORT INFORMATION
  Report Type: 
  Country: None (occurrence: None)
  Receive Date: 20100922
  Receipt Date: 20100908
  Transmission Date: 20110219
  Serious: Yes (Death, Hospitalization)
  Sender: FDA-Public Use
  Company Number: UTC-001420

PATIENT
  Age: 55 Year
  Sex: Female
  Weight: 78 kg

DRUGS (12)
  1. REMODULIN [Suspect]
     Indication: PULMONARY HYPERTENSION
     Dosage: 129.6 UG/KG (0.09 UG/KG, 1 IN 1 MIN),INTRAVENOUS
     Route: 042
     Dates: start: 20061216, end: 20100904
  2. LASIX [Concomitant]
  3. REVATIO [Concomitant]
  4. LOVASTATIN [Concomitant]
  5. DIGOXIN [Concomitant]
  6. LEVOTHYROXINE SODIUM [Concomitant]
  7. NEXIUM [Concomitant]
  8. SPIRONOLACTONE [Concomitant]
  9. WARFARIN SODIUM [Concomitant]
  10. FERROUS SULFATE TAB [Concomitant]
  11. TRACLEER [Concomitant]
  12. ASCORBIC ACID [Concomitant]

REACTIONS (1)
  - PNEUMONIA [None]
